FAERS Safety Report 8481916-6 (Version None)
Quarter: 2012Q2

REPORT INFORMATION
  Report Type: 
  Country: None (occurrence: None)
  Receive Date: 20120626
  Receipt Date: 20120626
  Transmission Date: 20120825
  Serious: Yes (Other)
  Sender: FDA-Public Use
  Company Number: None

PATIENT
  Age: 52 Year
  Sex: Female
  Weight: 48.5349 kg

DRUGS (1)
  1. ACETALOZAMIDE [Suspect]
     Indication: MOUNTAIN SICKNESS ACUTE
     Dosage: 2 DAILY
     Dates: start: 20111106, end: 20111111

REACTIONS (1)
  - NEUROPATHY PERIPHERAL [None]
